FAERS Safety Report 7746407-6 (Version None)
Quarter: 2011Q3

REPORT INFORMATION
  Report Type: 
  Country: None (occurrence: None)
  Receive Date: 20110913
  Receipt Date: 20110913
  Transmission Date: 20111222
  Serious: No
  Sender: FDA-Public Use
  Company Number: None

PATIENT
  Age: 50 Year
  Sex: Male
  Weight: 91.172 kg

DRUGS (1)
  1. LIALDA [Suspect]
     Indication: COLITIS ULCERATIVE
     Dosage: 2 TABLETS
     Route: 048
     Dates: start: 20110713, end: 20110727

REACTIONS (4)
  - NO THERAPEUTIC RESPONSE [None]
  - CONDITION AGGRAVATED [None]
  - THROMBOSIS [None]
  - COLITIS ULCERATIVE [None]
